FAERS Safety Report 9222970 (Version 1)
Quarter: 2013Q2

REPORT INFORMATION
  Report Type: Spontaneous
  Country: TR (occurrence: TR)
  Receive Date: 20130410
  Receipt Date: 20130410
  Transmission Date: 20140414
  Serious: Yes (Death, Hospitalization)
  Sender: FDA-Public Use
  Company Number: TR-ROXANE LABORATORIES, INC.-2013-RO-00441RO

PATIENT
  Age: 88 Year
  Sex: Female

DRUGS (2)
  1. RAMIPRIL [Suspect]
     Indication: HYPERTENSION
     Dosage: 10 MG
  2. RIVASTIGMINE [Suspect]
     Indication: DEMENTIA ALZHEIMER^S TYPE

REACTIONS (3)
  - Sudden death [Fatal]
  - Bradycardia [Unknown]
  - Atrioventricular block second degree [Unknown]
